FAERS Safety Report 8088666-9 (Version None)
Quarter: 2012Q1

REPORT INFORMATION
  Report Type: 
  Country: None (occurrence: None)
  Receive Date: 20120128
  Receipt Date: 20110411
  Transmission Date: 20120608
  Serious: No
  Sender: FDA-Public Use
  Company Number: US-ABBOTT-11P-163-0718578-00

PATIENT
  Sex: Female

DRUGS (16)
  1. BENAZEPRIL HYDROCHLORIDE [Concomitant]
     Indication: PRODUCT USED FOR UNKNOWN INDICATION
     Dosage: 40MG X 2 TABLETS DAILY
  2. METHOTREXATE [Concomitant]
     Indication: PRODUCT USED FOR UNKNOWN INDICATION
     Dosage: 2.5MG X 5 TABLETS WEEKLY
  3. FOLIC ACID [Concomitant]
     Indication: PRODUCT USED FOR UNKNOWN INDICATION
     Dosage: AT BEDTIME
  4. GABAPENTIN [Concomitant]
     Indication: PRODUCT USED FOR UNKNOWN INDICATION
  5. NAPROXEN [Concomitant]
     Indication: PRODUCT USED FOR UNKNOWN INDICATION
     Dosage: IN THE MORNING
  6. FELODIPINE [Concomitant]
     Indication: PRODUCT USED FOR UNKNOWN INDICATION
     Dosage: AT BEDTIME
  7. METFFORMIN HYDROCHLORIDE [Concomitant]
     Indication: PRODUCT USED FOR UNKNOWN INDICATION
  8. TRICOR [Concomitant]
     Indication: PRODUCT USED FOR UNKNOWN INDICATION
  9. ASPIRIN [Concomitant]
     Indication: PRODUCT USED FOR UNKNOWN INDICATION
  10. PRILOSEC [Concomitant]
     Indication: PRODUCT USED FOR UNKNOWN INDICATION
     Dosage: AT BEDTIME
  11. HUMIRA [Suspect]
     Indication: RHEUMATOID ARTHRITIS
     Dates: start: 20110101
  12. HYDROCHLOROTHIAZIDE [Concomitant]
     Indication: PRODUCT USED FOR UNKNOWN INDICATION
  13. GLUCOSAMINE + CHONDROITIN [Concomitant]
     Indication: PRODUCT USED FOR UNKNOWN INDICATION
     Dosage: DAILY
  14. CALCIUM +D [Concomitant]
     Indication: PRODUCT USED FOR UNKNOWN INDICATION
  15. GLIPIZIDE [Concomitant]
     Indication: PRODUCT USED FOR UNKNOWN INDICATION
     Dosage: AT BEDTIME
  16. PREDNISONE TAB [Concomitant]
     Indication: PRODUCT USED FOR UNKNOWN INDICATION

REACTIONS (8)
  - ARTHRALGIA [None]
  - INJECTION SITE ERYTHEMA [None]
  - INJECTION SITE WARMTH [None]
  - INJECTION SITE PRURITUS [None]
  - DRUG INEFFECTIVE [None]
  - SKIN DISCOLOURATION [None]
  - GAIT DISTURBANCE [None]
  - INJECTION SITE SWELLING [None]
